FAERS Safety Report 9878165 (Version 1)
Quarter: 2014Q1

REPORT INFORMATION
  Report Type: Spontaneous
  Country: TW (occurrence: TW)
  Receive Date: 20140206
  Receipt Date: 20140206
  Transmission Date: 20141002
  Serious: Yes (Hospitalization)
  Sender: FDA-Public Use
  Company Number: TW-SA-2014SA010505

PATIENT
  Age: 35 Year
  Sex: Male

DRUGS (4)
  1. PLAVIX [Suspect]
     Indication: MYOCARDIAL ISCHAEMIA
     Route: 065
     Dates: start: 20131014
  2. BOKEY [Concomitant]
  3. BRILINTA [Concomitant]
  4. HERBAL PREPARATION [Concomitant]

REACTIONS (1)
  - Chest discomfort [Recovered/Resolved]
